FAERS Safety Report 6410799-0 (Version None)
Quarter: 2009Q4

REPORT INFORMATION
  Report Type: 
  Country: None (occurrence: None)
  Receive Date: 20091022
  Receipt Date: 20091012
  Transmission Date: 20100525
  Serious: Yes (Life-Threatening, Hospitalization)
  Sender: FDA-Public Use
  Company Number: US-SANOFI-SYNTHELABO-F01200900986

PATIENT
  Sex: Female

DRUGS (9)
  1. LACTINEX [Concomitant]
  2. BENTYL [Concomitant]
  3. FLAGYL [Concomitant]
  4. CARDIZEM [Concomitant]
  5. DURAGESIC-100 [Concomitant]
  6. LOVENOX [Concomitant]
     Route: 058
  7. ERBITUX [Suspect]
     Dosage: GIVEN ON DAYS 1, 8 AND 15
     Dates: start: 20091001, end: 20091001
  8. DOCETAXEL [Suspect]
     Route: 042
     Dates: start: 20090930, end: 20090930
  9. OXALIPLATIN [Suspect]
     Indication: METASTATIC GASTRIC CANCER
     Route: 042
     Dates: start: 20090930, end: 20090930

REACTIONS (3)
  - HYPOTENSION [None]
  - LOSS OF CONSCIOUSNESS [None]
  - TACHYCARDIA [None]
